FAERS Safety Report 25364198 (Version 1)
Quarter: 2025Q2

REPORT INFORMATION
  Report Type: Report from Study
  Country: AR (occurrence: AR)
  Receive Date: 20250527
  Receipt Date: 20250527
  Transmission Date: 20250716
  Serious: Yes (Hospitalization, Other)
  Sender: AMGEN
  Company Number: AR-AMGEN-ARGSL2025007756

PATIENT
  Age: 59 Year
  Sex: Female

DRUGS (3)
  1. VECTIBIX [Suspect]
     Active Substance: PANITUMUMAB
     Indication: Colorectal cancer
     Route: 065
     Dates: start: 20250109
  2. CAPECITABINE [Suspect]
     Active Substance: CAPECITABINE
     Indication: Product used for unknown indication
     Route: 065
  3. CAPECITABINE [Suspect]
     Active Substance: CAPECITABINE
     Route: 065

REACTIONS (22)
  - Anxiety [Not Recovered/Not Resolved]
  - Thrombosis [Unknown]
  - Hypothyroidism [Unknown]
  - Lung disorder [Unknown]
  - Skin lesion [Unknown]
  - Toxicity to various agents [Unknown]
  - Peripheral swelling [Unknown]
  - Temperature intolerance [Unknown]
  - Abdominal discomfort [Unknown]
  - Electric shock sensation [Unknown]
  - Therapy interrupted [Unknown]
  - Skin discolouration [Unknown]
  - Memory impairment [Unknown]
  - White blood cell count decreased [Unknown]
  - Decreased immune responsiveness [Unknown]
  - Fatigue [Unknown]
  - Dyspnoea [Unknown]
  - Skin fissures [Unknown]
  - Dry skin [Unknown]
  - Acne [Unknown]
  - Rash [Unknown]
  - Stress [Not Recovered/Not Resolved]

NARRATIVE: CASE EVENT DATE: 20250101
